FAERS Safety Report 8482297-4 (Version None)
Quarter: 2012Q3

REPORT INFORMATION
  Report Type: 
  Country: None (occurrence: None)
  Receive Date: 20120702
  Receipt Date: 20120619
  Transmission Date: 20120928
  Serious: Yes (Death, Hospitalization)
  Sender: FDA-Public Use
  Company Number: JP-ROCHE-1070475

PATIENT
  Sex: Female
  Weight: 50 kg

DRUGS (12)
  1. TOCILIZUMAB [Suspect]
     Indication: RHEUMATOID ARTHRITIS
     Dosage: DOSAGE IS UNCERTAIN.
     Route: 041
     Dates: start: 20101026, end: 20120403
  2. RANITIDINE HCL [Concomitant]
     Indication: PROPHYLAXIS
     Route: 048
  3. RHEUMATREX [Suspect]
     Indication: RHEUMATOID ARTHRITIS
     Route: 048
     Dates: end: 20110826
  4. PREDNISOLONE [Concomitant]
     Indication: RHEUMATOID ARTHRITIS
     Route: 048
  5. ALFACALCIDOL [Concomitant]
     Route: 048
  6. ALENDRONATE SODIUM [Concomitant]
     Route: 048
  7. TALION (JAPAN) [Concomitant]
     Route: 048
  8. DIFLUNISAL [Concomitant]
     Route: 048
  9. HUMULIN R [Concomitant]
     Dosage: DOSAGE IS UNCERTAIN.
     Route: 048
  10. CELEBREX [Concomitant]
     Indication: RHEUMATOID ARTHRITIS
     Route: 048
  11. ASPIRIN [Concomitant]
     Route: 048
  12. LIPITOR [Concomitant]
     Route: 048

REACTIONS (7)
  - LIVER FUNCTION TEST ABNORMAL [None]
  - RESPIRATORY FAILURE [None]
  - CELLULITIS [None]
  - MENINGITIS [None]
  - SEPSIS [None]
  - PNEUMONIA [None]
  - THERMAL BURN [None]
